FAERS Safety Report 16551725 (Version 2)
Quarter: 2019Q3

REPORT INFORMATION
  Report Type: Spontaneous
  Country: JP (occurrence: JP)
  Receive Date: 20190710
  Receipt Date: 20190823
  Transmission Date: 20191004
  Serious: Yes (Other)
  Sender: FDA-Public Use
  Company Number: JP-ROCHE-2349199

PATIENT
  Age: 56 Year
  Sex: Female

DRUGS (1)
  1. XOLAIR [Suspect]
     Active Substance: OMALIZUMAB
     Indication: ASPIRIN-EXACERBATED RESPIRATORY DISEASE
     Dosage: UNK
     Route: 062

REACTIONS (5)
  - Sarcoidosis [Recovered/Resolved]
  - Product use in unapproved indication [Unknown]
  - Dyspnoea [Unknown]
  - Computerised tomogram thorax abnormal [Unknown]
  - Off label use [Unknown]
